FAERS Safety Report 5725767-1 (Version None)
Quarter: 2008Q2

REPORT INFORMATION
  Report Type: 
  Country: None (occurrence: None)
  Receive Date: 20080429
  Receipt Date: 20080416
  Transmission Date: 20081010
  Serious: Yes (Death)
  Sender: FDA-Public Use
  Company Number: 2008-01316

PATIENT
  Age: 51 Year
  Sex: Male
  Weight: 106 kg

DRUGS (8)
  1. VELCADE [Suspect]
     Indication: MULTIPLE MYELOMA
     Dosage: 1.6 MG/M2, INTRAVENOUS
     Route: 042
     Dates: start: 20080325, end: 20080408
  2. CCI-779(TEMSIROLIMUS) INJECTION [Suspect]
     Indication: MULTIPLE MYELOMA
     Dosage: 25 MG/M2, INTRAVENOUS
     Route: 042
     Dates: start: 20080325, end: 20080408
  3. NEURONTIN [Concomitant]
  4. METOPROLOL TARTRATE [Concomitant]
  5. OXYCODONE HCL [Concomitant]
  6. AMOXICILLIN [Concomitant]
  7. VALTREX [Concomitant]
  8. ADVAIR DISKUS (FLUTICASONE PROPIONATE, SALMETEROL XINAFOATE) [Concomitant]

REACTIONS (13)
  - ACUTE MYOCARDIAL INFARCTION [None]
  - ACUTE RESPIRATORY DISTRESS SYNDROME [None]
  - BLOOD CREATININE INCREASED [None]
  - HAEMOGLOBIN DECREASED [None]
  - MULTI-ORGAN FAILURE [None]
  - NEUTROPHIL COUNT DECREASED [None]
  - PLATELET COUNT DECREASED [None]
  - PLEURAL EFFUSION [None]
  - PNEUMONIA [None]
  - PULMONARY OEDEMA [None]
  - SEPTIC SHOCK [None]
  - SUDDEN DEATH [None]
  - UNRESPONSIVE TO STIMULI [None]
